FAERS Safety Report 7951201-7 (Version None)
Quarter: 2011Q4

REPORT INFORMATION
  Report Type: 
  Country: None (occurrence: None)
  Receive Date: 20111201
  Receipt Date: 20111122
  Transmission Date: 20120403
  Serious: Yes (Hospitalization, Other)
  Sender: FDA-Public Use
  Company Number: PHFR2010GB01685

PATIENT
  Sex: Female

DRUGS (3)
  1. CLOZARIL [Suspect]
     Indication: SCHIZOPHRENIA
     Route: 048
     Dates: start: 20090521
  2. CLOZARIL [Suspect]
     Dosage: 450 MG
     Route: 048
  3. VALPROATE SODIUM [Concomitant]
     Dosage: 1000 MG, UNK
     Route: 048

REACTIONS (2)
  - MENORRHAGIA [None]
  - ANAEMIA [None]
